FAERS Safety Report 4617171-4 (Version None)
Quarter: 2005Q1

REPORT INFORMATION
  Report Type: 
  Country: None (occurrence: None)
  Receive Date: 20050323
  Receipt Date: 20050311
  Transmission Date: 20050727
  Serious: Yes (Hospitalization)
  Sender: FDA-Public Use
  Company Number: FR-GLAXOSMITHKLINE-B0374415A

PATIENT
  Age: 53 Year
  Sex: Female

DRUGS (9)
  1. LAMICTAL [Suspect]
     Route: 048
     Dates: start: 20050211, end: 20050227
  2. PYOSTACINE [Suspect]
     Route: 048
     Dates: start: 20050222, end: 20050227
  3. DEROXAT [Concomitant]
     Route: 048
     Dates: end: 20050227
  4. MEPRONIZINE [Concomitant]
     Route: 048
     Dates: end: 20050227
  5. EFFERALGAN [Concomitant]
     Route: 048
     Dates: start: 20050222
  6. ECAZIDE [Concomitant]
     Route: 048
     Dates: end: 20050227
  7. CELIPROLOL [Concomitant]
     Route: 048
  8. LEVOTHYROX [Concomitant]
     Route: 048
  9. ALPRAZOLAM [Concomitant]
     Route: 048

REACTIONS (9)
  - ARTHRALGIA [None]
  - DERMATITIS EXFOLIATIVE [None]
  - GAMMA-GLUTAMYLTRANSFERASE INCREASED [None]
  - HEPATOCELLULAR DAMAGE [None]
  - INFLAMMATION [None]
  - LYMPHOPENIA [None]
  - MYALGIA [None]
  - PYREXIA [None]
  - THROMBOCYTOPENIA [None]
